FAERS Safety Report 5122852-2 (Version None)
Quarter: 2006Q4

REPORT INFORMATION
  Report Type: 
  Country: None (occurrence: None)
  Receive Date: 20061004
  Receipt Date: 20061004
  Transmission Date: 20070319
  Serious: No
  Sender: FDA-Public Use
  Company Number: None

PATIENT
  Sex: Male
  Weight: 71.6683 kg

DRUGS (3)
  1. ACTOS [Suspect]
     Indication: DIABETES MELLITUS NON-INSULIN-DEPENDENT
     Dosage: 15 MG 1X D ORAL
     Route: 048
     Dates: start: 20060915
  2. METFORMIN HCL [Concomitant]
  3. ZOCOR [Concomitant]

REACTIONS (1)
  - URETHRAL PAIN [None]
